FAERS Safety Report 25119958 (Version 1)
Quarter: 2025Q1

REPORT INFORMATION
  Report Type: Spontaneous
  Country: US (occurrence: US)
  Receive Date: 20250325
  Receipt Date: 20250325
  Transmission Date: 20250409
  Serious: Yes (Other)
  Sender: UCB
  Company Number: US-UCBSA-2025014723

PATIENT
  Age: 37 Year
  Sex: Male

DRUGS (3)
  1. BRIVIACT [Interacting]
     Active Substance: BRIVARACETAM
     Indication: Epilepsy
  2. BRIVIACT [Interacting]
     Active Substance: BRIVARACETAM
     Indication: Epilepsy
     Route: 048
     Dates: start: 202410
  3. TAURINE [Interacting]
     Active Substance: TAURINE
     Indication: Product used for unknown indication

REACTIONS (6)
  - Seizure [Unknown]
  - Drug interaction [Unknown]
  - Fatigue [Unknown]
  - Constipation [Unknown]
  - Insomnia [Unknown]
  - Product use issue [Unknown]

NARRATIVE: CASE EVENT DATE: 20241001
